FAERS Safety Report 5434959-0 (Version None)
Quarter: 2007Q3

REPORT INFORMATION
  Report Type: 
  Country: None (occurrence: None)
  Receive Date: 20070831
  Receipt Date: 20070818
  Transmission Date: 20080115
  Serious: No
  Sender: FDA-Public Use
  Company Number: A0669751A

PATIENT
  Age: 52 Year
  Sex: Female

DRUGS (1)
  1. ALLI [Suspect]
     Indication: DRUG USE FOR UNKNOWN INDICATION
     Route: 048

REACTIONS (4)
  - BLOOD CHOLESTEROL INCREASED [None]
  - CHANGE OF BOWEL HABIT [None]
  - CONSTIPATION [None]
  - THERAPEUTIC RESPONSE UNEXPECTED [None]
